FAERS Safety Report 18980495 (Version 1)
Quarter: 2021Q1

REPORT INFORMATION
  Report Type: Spontaneous
  Country: US (occurrence: US)
  Receive Date: 20210308
  Receipt Date: 20210308
  Transmission Date: 20210420
  Serious: Yes (Other)
  Sender: FDA-Public Use
  Company Number: US-GW PHARMA-202102USGW00893

PATIENT

DRUGS (1)
  1. EPIDIOLEX [Suspect]
     Active Substance: CANNABIDIOL
     Indication: EPILEPSY
     Dosage: 200 MILLIGRAM, BID
     Dates: start: 201906

REACTIONS (3)
  - Product dose omission issue [Unknown]
  - Seizure [Not Recovered/Not Resolved]
  - Product distribution issue [Unknown]
